FAERS Safety Report 6653527-6 (Version None)
Quarter: 2010Q1

REPORT INFORMATION
  Report Type: 
  Country: None (occurrence: None)
  Receive Date: 20100326
  Receipt Date: 20100323
  Transmission Date: 20100710
  Serious: Yes (Life-Threatening, Hospitalization)
  Sender: FDA-Public Use
  Company Number: GB-EISAI INC.-E2020-06278-SPO-GB

PATIENT
  Age: 82 Year
  Sex: Male
  Weight: 75 kg

DRUGS (1)
  1. ARICEPT [Suspect]
     Route: 048
     Dates: start: 20060101, end: 20100312

REACTIONS (1)
  - DUODENAL ULCER REPAIR [None]
